FAERS Safety Report 4686651-8 (Version None)
Quarter: 2005Q2

REPORT INFORMATION
  Report Type: 
  Country: None (occurrence: None)
  Receive Date: 20050609
  Receipt Date: 20050607
  Transmission Date: 20051028
  Serious: Yes (Death)
  Sender: FDA-Public Use
  Company Number: 2005PK00964

PATIENT
  Age: 51 Year
  Sex: Male

DRUGS (3)
  1. SEROQUEL [Suspect]
     Route: 048
     Dates: start: 20050425, end: 20050513
  2. PROMETHAZINE [Suspect]
     Dates: start: 20050330, end: 20050513
  3. BISOPROLOL FUMARATE [Suspect]
     Dates: end: 20050513

REACTIONS (1)
  - DEATH [None]
